FAERS Safety Report 4923835-5 (Version None)
Quarter: 2006Q1

REPORT INFORMATION
  Report Type: 
  Country: None (occurrence: None)
  Receive Date: 20060224
  Receipt Date: 20060224
  Transmission Date: 20060701
  Serious: Yes (Other)
  Sender: FDA-Public Use
  Company Number: None

PATIENT
  Sex: Male
  Weight: 79.3795 kg

DRUGS (1)
  1. KETEK [Suspect]
     Indication: PNEUMONIA
     Dosage: 400MG TWICE DAILY PO
     Route: 048
     Dates: start: 20051214, end: 20051219

REACTIONS (1)
  - LIVER FUNCTION TEST ABNORMAL [None]
